FAERS Safety Report 12248144 (Version 1)
Quarter: 2016Q2

REPORT INFORMATION
  Report Type: Spontaneous
  Country: CA (occurrence: CA)
  Receive Date: 20160408
  Receipt Date: 20160408
  Transmission Date: 20160815
  Serious: Yes (Other)
  Sender: FDA-Public Use
  Company Number: CA-ROCHE-1710094

PATIENT
  Sex: Female

DRUGS (7)
  1. MAGIC MOUTHWASH (NYSTATIN) [Suspect]
     Active Substance: NYSTATIN
     Indication: CANDIDA INFECTION
  2. INDOCIN [Concomitant]
     Active Substance: INDOMETHACIN\INDOMETHACIN SODIUM
  3. RITUXAN [Suspect]
     Active Substance: RITUXIMAB
     Indication: RHEUMATOID ARTHRITIS
     Route: 065
  4. PREDNISONE. [Concomitant]
     Active Substance: PREDNISONE
  5. ACTEMRA [Suspect]
     Active Substance: TOCILIZUMAB
     Indication: RHEUMATOID ARTHRITIS
     Route: 065
  6. MAGIC MOUTHWASH (NYSTATIN) [Suspect]
     Active Substance: NYSTATIN
     Indication: MOUTH ULCERATION
     Route: 065
  7. TRAMADOL. [Concomitant]
     Active Substance: TRAMADOL

REACTIONS (11)
  - Tooth infection [Unknown]
  - Rotator cuff syndrome [Unknown]
  - Mouth ulceration [Unknown]
  - Drug resistance [Unknown]
  - Drug ineffective [Unknown]
  - Treatment failure [Unknown]
  - Candida infection [Unknown]
  - Carpal tunnel syndrome [Unknown]
  - Drug intolerance [Unknown]
  - Therapeutic response decreased [Unknown]
  - Tongue ulceration [Not Recovered/Not Resolved]
